FAERS Safety Report 14956301 (Version 1)
Quarter: 2018Q2

REPORT INFORMATION
  Report Type: Report from Study
  Country: FR (occurrence: FR)
  Receive Date: 20180531
  Receipt Date: 20180531
  Transmission Date: 20180711
  Serious: Yes (Other)
  Sender: FDA-Public Use
  Company Number: FR-ACCORD-067506

PATIENT
  Age: 69 Year
  Sex: Male

DRUGS (8)
  1. VERSATIS [Concomitant]
     Active Substance: LIDOCAINE
     Dates: start: 20151105
  2. EMEND [Concomitant]
     Active Substance: APREPITANT
     Dates: start: 201505
  3. LEUCOVORIN. [Suspect]
     Active Substance: LEUCOVORIN
     Indication: COLORECTAL CANCER METASTATIC
     Route: 041
     Dates: start: 20150506, end: 20150506
  4. EFFERALGAN [Concomitant]
     Active Substance: ACETAMINOPHEN
     Dates: start: 2015
  5. AFLIBERCEPT [Suspect]
     Active Substance: AFLIBERCEPT
     Indication: COLORECTAL CANCER METASTATIC
     Route: 041
     Dates: start: 20150506, end: 20150506
  6. IRINOTECAN [Suspect]
     Active Substance: IRINOTECAN
     Indication: COLORECTAL CANCER METASTATIC
     Route: 041
     Dates: start: 20150506, end: 20150506
  7. ANAUSIN [Concomitant]
     Active Substance: METOCLOPRAMIDE HYDROCHLORIDE
     Dates: start: 201505
  8. FLUOROURACIL. [Suspect]
     Active Substance: FLUOROURACIL
     Indication: COLORECTAL CANCER METASTATIC
     Route: 041
     Dates: start: 20150506, end: 20150506

REACTIONS (2)
  - Hypersomnia [Recovered/Resolved]
  - Delirium [Not Recovered/Not Resolved]

NARRATIVE: CASE EVENT DATE: 201603
